FAERS Safety Report 16370118 (Version 2)
Quarter: 2019Q3

REPORT INFORMATION
  Report Type: Spontaneous
  Country: ES (occurrence: ES)
  Receive Date: 20190530
  Receipt Date: 20190802
  Transmission Date: 20191004
  Serious: Yes (Hospitalization, Other)
  Sender: FDA-Public Use
  Company Number: ES-SA-2019SA145230

PATIENT
  Age: 54 Year
  Sex: Male

DRUGS (11)
  1. AMANTADINE. [Concomitant]
     Active Substance: AMANTADINE HYDROCHLORIDE
     Dosage: 1-1-2
  2. LIORESAL [Concomitant]
     Active Substance: BACLOFEN
     Dosage: 1-1-1
  3. AUBAGIO [Suspect]
     Active Substance: TERIFLUNOMIDE
     Indication: RELAPSING-REMITTING MULTIPLE SCLEROSIS
     Dosage: 14 MG, QD
     Route: 048
     Dates: start: 20190320, end: 20190422
  4. ENANTYUM [Concomitant]
     Active Substance: DEXKETOPROFEN TROMETAMOL
     Dosage: 1-1-1
  5. METAMIZOLE [Concomitant]
     Active Substance: METAMIZOLE
     Dosage: 1-1-1
  6. LORMETAZEPAM [Concomitant]
     Active Substance: LORMETAZEPAM
     Dosage: 0-0-1
  7. FOLIC [Concomitant]
     Active Substance: FOLIC ACID
  8. VITAMIN B12 [Concomitant]
     Active Substance: CYANOCOBALAMIN
  9. PARACETAMOL [Concomitant]
     Active Substance: ACETAMINOPHEN
     Dosage: 1-1-1
  10. PHENTANYL [Concomitant]
     Active Substance: FENTANYL
     Dosage: 50 MCG PATCH EVERY 72 HOURS
  11. OMEPRAZOLE. [Concomitant]
     Active Substance: OMEPRAZOLE
     Dosage: 1-0-0

REACTIONS (14)
  - Hypokalaemia [Not Recovered/Not Resolved]
  - Cachexia [Unknown]
  - Weight decreased [Unknown]
  - Hypocalcaemia [Unknown]
  - Faeces discoloured [Not Recovered/Not Resolved]
  - Diarrhoea [Not Recovered/Not Resolved]
  - Hypophosphataemia [Unknown]
  - Diverticulitis [Not Recovered/Not Resolved]
  - Abdominal pain lower [Not Recovered/Not Resolved]
  - Decreased appetite [Unknown]
  - Vitamin D deficiency [Unknown]
  - Hypoproteinaemia [Unknown]
  - Asthenia [Not Recovered/Not Resolved]
  - Diarrhoea [Recovering/Resolving]

NARRATIVE: CASE EVENT DATE: 2019
